FAERS Safety Report 5445017-3 (Version None)
Quarter: 2007Q3

REPORT INFORMATION
  Report Type: 
  Country: None (occurrence: None)
  Receive Date: 20070906
  Receipt Date: 20070829
  Transmission Date: 20080115
  Serious: Yes (Hospitalization)
  Sender: FDA-Public Use
  Company Number: IT-ELI_LILLY_AND_COMPANY-IT200708006910

PATIENT
  Age: 50 Year
  Sex: Female

DRUGS (2)
  1. ZYPREXA [Suspect]
     Indication: SCHIZOPHRENIA
     Dosage: 20 MG, DAILY (1/D)
     Route: 048
     Dates: start: 20070608, end: 20070730
  2. DELORAZEPAM [Concomitant]
     Dosage: 60 GTT, UNK
     Route: 048
     Dates: start: 20020101

REACTIONS (6)
  - ALTERED STATE OF CONSCIOUSNESS [None]
  - HYPERTONIA [None]
  - HYPOCHROMIC ANAEMIA [None]
  - MALAISE [None]
  - NEUROLEPTIC MALIGNANT SYNDROME [None]
  - VOMITING [None]
